FAERS Safety Report 24844783 (Version 1)
Quarter: 2025Q1

REPORT INFORMATION
  Report Type: Spontaneous
  Country: IT (occurrence: IT)
  Receive Date: 20250115
  Receipt Date: 20250115
  Transmission Date: 20250408
  Serious: Yes (Death, Hospitalization, Other)
  Sender: BRISTOL-MYERS SQUIBB COMPANY
  Company Number: None

PATIENT
  Age: 43 Year
  Sex: Female
  Weight: 60 kg

DRUGS (4)
  1. YERVOY [Suspect]
     Active Substance: IPILIMUMAB
     Indication: Metastatic malignant melanoma
     Dosage: 3 MG/KG, Q3W FOR 4 TOTAL DOSES. ADMINISTRATION OF THE 4TH AND FINAL CYCLE
     Route: 042
     Dates: start: 20241106, end: 20241115
  2. DIENOGEST [Concomitant]
     Active Substance: DIENOGEST
     Indication: Endometriosis
     Dosage: 1 CP/DAY
     Route: 048
     Dates: start: 2022
  3. LYRICA [Concomitant]
     Active Substance: PREGABALIN
     Indication: Neuralgia
     Route: 048
  4. TRAMADOL HYDROCHLORIDE [Concomitant]
     Active Substance: TRAMADOL HYDROCHLORIDE
     Indication: Pain
     Route: 048
     Dates: start: 202407

REACTIONS (4)
  - Immune-mediated hepatitis [Fatal]
  - Thrombocytopenia [Fatal]
  - Cholangitis [Fatal]
  - Internal haemorrhage [Fatal]

NARRATIVE: CASE EVENT DATE: 20241120
